FAERS Safety Report 14520003 (Version 1)
Quarter: 2018Q1

REPORT INFORMATION
  Report Type: Spontaneous
  Country: US (occurrence: US)
  Receive Date: 20180212
  Receipt Date: 20180212
  Transmission Date: 20180509
  Serious: Yes (Death)
  Sender: FDA-Public Use
  Company Number: US-SA-2018SA034972

PATIENT
  Age: 72 Year
  Sex: Female

DRUGS (5)
  1. TOUJEO [Suspect]
     Active Substance: INSULIN GLARGINE
     Route: 051
     Dates: start: 2015, end: 201801
  2. SOLOSTAR [Suspect]
     Active Substance: DEVICE
     Dates: start: 2015, end: 201801
  3. LANTUS [Suspect]
     Active Substance: INSULIN GLARGINE
     Route: 051
     Dates: start: 2015, end: 201801
  4. LANTUS SOLOSTAR [Suspect]
     Active Substance: INSULIN GLARGINE
     Route: 051
     Dates: start: 2015, end: 201801
  5. SOLOSTAR [Suspect]
     Active Substance: DEVICE
     Dates: start: 2015, end: 201801

REACTIONS (2)
  - Cerebrovascular accident [Fatal]
  - Renal failure [Fatal]
